FAERS Safety Report 5640626-0 (Version None)
Quarter: 2008Q1

REPORT INFORMATION
  Report Type: 
  Country: None (occurrence: None)
  Receive Date: 20080227
  Receipt Date: 20080215
  Transmission Date: 20080703
  Serious: Yes (Hospitalization)
  Sender: FDA-Public Use
  Company Number: US-AMGEN-US266142

PATIENT
  Sex: Female

DRUGS (10)
  1. PROCRIT [Suspect]
     Indication: RENAL FAILURE CHRONIC
     Route: 058
     Dates: start: 20080101
  2. SYNTHROID [Concomitant]
  3. ACTOS [Concomitant]
  4. CARDURA [Concomitant]
  5. NEXIUM [Concomitant]
  6. CLONIDINE [Concomitant]
  7. METOPROLOL TARTRATE [Concomitant]
  8. LASIX [Concomitant]
  9. DIOVAN [Concomitant]
  10. GLUCOTROL [Concomitant]

REACTIONS (3)
  - ASTHENIA [None]
  - HEART RATE INCREASED [None]
  - LISTLESS [None]
